FAERS Safety Report 9297466 (Version 1)
Quarter: 2013Q2

REPORT INFORMATION
  Report Type: Spontaneous
  Country: US (occurrence: US)
  Receive Date: 20130520
  Receipt Date: 20130520
  Transmission Date: 20140414
  Serious: No
  Sender: FDA-Public Use
  Company Number: US-009507513-1305USA010327

PATIENT
  Sex: Female

DRUGS (2)
  1. NASONEX [Suspect]
     Indication: EAR DISORDER
     Dosage: UNK
     Route: 045
     Dates: start: 2011
  2. FLUTICASONE [Concomitant]
     Indication: EAR DISORDER
     Dosage: 50 MICROGRAM, UNK
     Route: 045

REACTIONS (1)
  - Drug ineffective [Unknown]
